FAERS Safety Report 7504864-4 (Version None)
Quarter: 2011Q2

REPORT INFORMATION
  Report Type: 
  Country: None (occurrence: None)
  Receive Date: 20110526
  Receipt Date: 20110517
  Transmission Date: 20111010
  Serious: Yes (Other)
  Sender: FDA-Public Use
  Company Number: ES-PAR PHARMACEUTICAL, INC-2011SCPR003003

PATIENT
  Age: 52 Year
  Sex: Female

DRUGS (1)
  1. NABUMETONE [Suspect]
     Indication: ALLERGY TEST
     Dosage: 1 G, SINGLE
     Route: 048

REACTIONS (1)
  - DRUG ERUPTION [None]
